FAERS Safety Report 10646808 (Version 1)
Quarter: 2014Q4

REPORT INFORMATION
  Report Type: Spontaneous
  Country: US (occurrence: US)
  Receive Date: 20141211
  Receipt Date: 20141211
  Transmission Date: 20150529
  Serious: No
  Sender: FDA-Public Use
  Company Number: US-PFIZER INC-2014336817

PATIENT
  Age: 47 Year
  Sex: Male

DRUGS (1)
  1. XALKORI [Suspect]
     Active Substance: CRIZOTINIB
     Indication: LUNG NEOPLASM MALIGNANT
     Dosage: 250 MG, 2X/DAY (ONE CAPSULE TWICE PER DAY)
     Dates: start: 201411, end: 201412

REACTIONS (4)
  - Visual acuity reduced [Unknown]
  - Vitreous floaters [Unknown]
  - Nausea [Unknown]
  - Anxiety [Unknown]

NARRATIVE: CASE EVENT DATE: 2014
